FAERS Safety Report 5630849-9 (Version None)
Quarter: 2008Q1

REPORT INFORMATION
  Report Type: 
  Country: None (occurrence: None)
  Receive Date: 20080219
  Receipt Date: 20080213
  Transmission Date: 20080703
  Serious: Yes (Other)
  Sender: FDA-Public Use
  Company Number: BR-ASTRAZENECA-2008UW03139

PATIENT
  Age: 58 Year
  Sex: Female

DRUGS (1)
  1. SELOZOK [Suspect]
     Route: 048

REACTIONS (2)
  - OESOPHAGEAL ACHALASIA [None]
  - WEIGHT DECREASED [None]
